FAERS Safety Report 17066445 (Version 1)
Quarter: 2019Q4

REPORT INFORMATION
  Report Type: Spontaneous
  Country: US (occurrence: US)
  Receive Date: 20191024
  Receipt Date: 20191024
  Transmission Date: 20200122
  Serious: No
  Sender: FDA-Public Use
  Company Number: None

PATIENT
  Sex: Male

DRUGS (1)
  1. MAVYRET [Suspect]
     Active Substance: GLECAPREVIR\PIBRENTASVIR
     Indication: HEPATITIS VIRAL
     Dosage: ?          OTHER DOSE:3 TABLETS;?
     Route: 048
     Dates: start: 201909, end: 201909

REACTIONS (3)
  - Vomiting [None]
  - Body temperature increased [None]
  - Cold sweat [None]
